FAERS Safety Report 7540420-X (Version None)
Quarter: 2011Q2

REPORT INFORMATION
  Report Type: 
  Country: None (occurrence: None)
  Receive Date: 20110610
  Receipt Date: 20110531
  Transmission Date: 20111010
  Serious: Yes (Death, Hospitalization, Other)
  Sender: FDA-Public Use
  Company Number: NL-GENZYME-CLOF-1001207

PATIENT
  Sex: Female

DRUGS (32)
  1. CALCIUM CHLORIDE [Concomitant]
     Indication: PRODUCT USED FOR UNKNOWN INDICATION
  2. FLUCONAZOLE [Concomitant]
     Indication: PRODUCT USED FOR UNKNOWN INDICATION
  3. INFLIXIMAB [Concomitant]
     Indication: PRODUCT USED FOR UNKNOWN INDICATION
  4. EVOLTRA [Suspect]
     Indication: ACUTE LEUKAEMIA
     Dosage: 35 MG, QDX5
     Route: 042
     Dates: start: 20100315, end: 20100319
  5. BUDESONIDE [Concomitant]
     Indication: PRODUCT USED FOR UNKNOWN INDICATION
  6. CALCIUM GLUBIONATE [Concomitant]
     Indication: PRODUCT USED FOR UNKNOWN INDICATION
  7. CALCIUM CHLORIDE [Concomitant]
  8. COTRIM [Concomitant]
     Indication: PRODUCT USED FOR UNKNOWN INDICATION
  9. LORAZEPAM [Concomitant]
     Indication: PRODUCT USED FOR UNKNOWN INDICATION
  10. FRESH FROZEN PLASMA [Concomitant]
     Indication: FIBRIN D DIMER NORMAL
     Dosage: UNK
  11. PEG-ASPARAGINASE [Suspect]
     Indication: ACUTE LEUKAEMIA
     Dosage: 1800 MG, UNK
     Route: 042
     Dates: start: 20100513, end: 20100528
  12. VALACYCLOVIR [Concomitant]
     Indication: PRODUCT USED FOR UNKNOWN INDICATION
  13. CYCLOSPORINE [Concomitant]
     Indication: PRODUCT USED FOR UNKNOWN INDICATION
  14. PREDNISOLONE [Suspect]
     Indication: ACUTE LEUKAEMIA
     Dosage: 25 MG, ONCE
     Route: 037
     Dates: start: 20100526, end: 20100526
  15. TACROLIMUS [Concomitant]
     Indication: PRODUCT USED FOR UNKNOWN INDICATION
  16. SOLUTIONS FOR PARENTERAL NUTRITION [Concomitant]
     Indication: PRODUCT USED FOR UNKNOWN INDICATION
  17. ESOMEPRAZOLE MAGNESIUM [Concomitant]
     Indication: PRODUCT USED FOR UNKNOWN INDICATION
  18. NADROPARIN [Concomitant]
     Indication: PRODUCT USED FOR UNKNOWN INDICATION
  19. LOPERAMIDE [Concomitant]
     Indication: PRODUCT USED FOR UNKNOWN INDICATION
  20. NOVORAPID [Concomitant]
     Indication: PRODUCT USED FOR UNKNOWN INDICATION
  21. IMIPENEM [Concomitant]
     Indication: PRODUCT USED FOR UNKNOWN INDICATION
  22. SODIUM BICARBONATE [Concomitant]
     Indication: PRODUCT USED FOR UNKNOWN INDICATION
  23. MYCOPHENOLIC ACID [Concomitant]
     Indication: PRODUCT USED FOR UNKNOWN INDICATION
  24. METHOTREXATE [Suspect]
     Indication: ACUTE LEUKAEMIA
     Dosage: 15 MG, ONCE
     Route: 037
     Dates: start: 20100526, end: 20100526
  25. OXAZEPAM [Concomitant]
     Indication: PRODUCT USED FOR UNKNOWN INDICATION
  26. VORICONAZOLE [Concomitant]
     Indication: PRODUCT USED FOR UNKNOWN INDICATION
  27. PROGRAF [Concomitant]
     Indication: PRODUCT USED FOR UNKNOWN INDICATION
  28. METOCLOPRAMIDE [Concomitant]
     Indication: PRODUCT USED FOR UNKNOWN INDICATION
  29. CYTARABINE [Suspect]
     Indication: ACUTE LEUKAEMIA
     Dosage: 3600 MG, UNK
     Route: 042
     Dates: start: 20100511, end: 20100512
  30. ZINC CHLORIDE [Concomitant]
     Indication: PRODUCT USED FOR UNKNOWN INDICATION
  31. PROMETHAZINE [Concomitant]
     Indication: PRODUCT USED FOR UNKNOWN INDICATION
  32. ALBUMIN (HUMAN) [Concomitant]
     Indication: PRODUCT USED FOR UNKNOWN INDICATION

REACTIONS (6)
  - PULMONARY EMBOLISM [None]
  - BREAST PAIN [None]
  - ACUTE GRAFT VERSUS HOST DISEASE IN INTESTINE [None]
  - THROMBOSIS [None]
  - RENAL FAILURE [None]
  - DEHYDRATION [None]
